FAERS Safety Report 10372273 (Version 1)
Quarter: 2014Q3

REPORT INFORMATION
  Report Type: Spontaneous
  Country: US (occurrence: US)
  Receive Date: 20140808
  Receipt Date: 20140808
  Transmission Date: 20150326
  Serious: No
  Sender: FDA-Public Use
  Company Number: US-BRISTOL-MYERS SQUIBB COMPANY-20751632

PATIENT
  Age: 54 Year
  Sex: Male
  Weight: 95 kg

DRUGS (7)
  1. TRIAMTERENE + HCTZ [Concomitant]
     Dosage: TABS?1DF=37.25-25 UNITS NOS
  2. VITAMIN B12 [Concomitant]
     Active Substance: CYANOCOBALAMIN
     Route: 058
  3. ASPIRIN. [Concomitant]
     Active Substance: ASPIRIN
     Dosage: LOW TAB 81MG EC
  4. FISH OIL [Concomitant]
     Active Substance: FISH OIL
     Dosage: CAPS
  5. SPRYCEL [Suspect]
     Active Substance: DASATINIB
     Dosage: 100MG TABS
     Route: 048
  6. SIMVASTATIN TAB [Concomitant]
     Active Substance: SIMVASTATIN
  7. AMLODIPINE BESYLATE+BENAZEPRIL HCL [Concomitant]
     Dosage: 1DF=5-20MG UNITS

REACTIONS (8)
  - Fatigue [Unknown]
  - Red blood cell count decreased [Unknown]
  - Rash [Unknown]
  - Lacrimation increased [Unknown]
  - Productive cough [Unknown]
  - Decreased appetite [Unknown]
  - Nasal congestion [Unknown]
  - Hyperhidrosis [Unknown]
